FAERS Safety Report 25452686 (Version 1)
Quarter: 2025Q2

REPORT INFORMATION
  Report Type: Spontaneous
  Country: CN (occurrence: CN)
  Receive Date: 20250618
  Receipt Date: 20250618
  Transmission Date: 20250717
  Serious: Yes (Other)
  Sender: ELI LILLY AND COMPANY
  Company Number: CN-ELI_LILLY_AND_COMPANY-CN202506008157

PATIENT
  Age: 27 Year
  Sex: Female
  Weight: 74 kg

DRUGS (8)
  1. MOUNJARO [Suspect]
     Active Substance: TIRZEPATIDE
     Indication: Hyperglycaemia
     Route: 058
     Dates: start: 20250607, end: 20250607
  2. MOUNJARO [Suspect]
     Active Substance: TIRZEPATIDE
     Indication: Hyperglycaemia
     Route: 058
     Dates: start: 20250607, end: 20250607
  3. MOUNJARO [Suspect]
     Active Substance: TIRZEPATIDE
     Indication: Hyperglycaemia
     Route: 058
     Dates: start: 20250607, end: 20250607
  4. MOUNJARO [Suspect]
     Active Substance: TIRZEPATIDE
     Indication: Hyperglycaemia
     Route: 058
     Dates: start: 20250607, end: 20250607
  5. MOUNJARO [Suspect]
     Active Substance: TIRZEPATIDE
     Indication: Weight control
  6. MOUNJARO [Suspect]
     Active Substance: TIRZEPATIDE
     Indication: Weight control
  7. MOUNJARO [Suspect]
     Active Substance: TIRZEPATIDE
     Indication: Weight control
  8. MOUNJARO [Suspect]
     Active Substance: TIRZEPATIDE
     Indication: Weight control

REACTIONS (6)
  - Respiratory alkalosis [Recovered/Resolved]
  - Gastroenteritis [Recovering/Resolving]
  - Cold sweat [Recovering/Resolving]
  - Pallor [Recovering/Resolving]
  - Intentional product misuse [Unknown]
  - Asthenia [Unknown]

NARRATIVE: CASE EVENT DATE: 20250607
